FAERS Safety Report 6034730-5 (Version None)
Quarter: 2009Q1

REPORT INFORMATION
  Report Type: 
  Country: None (occurrence: None)
  Receive Date: 20090109
  Receipt Date: 20090109
  Transmission Date: 20090719
  Serious: No
  Sender: FDA-Public Use
  Company Number: None

PATIENT
  Sex: Female

DRUGS (5)
  1. ZOMETA [Suspect]
     Indication: BREAST CANCER METASTATIC
     Dosage: 4 MG MONTHLY IV
     Route: 042
     Dates: start: 20040301, end: 20060301
  2. NAVELBINE [Concomitant]
  3. DOXIL [Concomitant]
  4. AVANDIA [Concomitant]
  5. NITROGLYCERIN [Concomitant]

REACTIONS (3)
  - IMPAIRED HEALING [None]
  - JAW DISORDER [None]
  - POST PROCEDURAL COMPLICATION [None]
